FAERS Safety Report 8020235-9 (Version None)
Quarter: 2012Q1

REPORT INFORMATION
  Report Type: 
  Country: None (occurrence: None)
  Receive Date: 20120103
  Receipt Date: 20111226
  Transmission Date: 20120608
  Serious: Yes (Other)
  Sender: FDA-Public Use
  Company Number: US-US-EMD SERONO, INC.-7103901

PATIENT
  Sex: Female

DRUGS (1)
  1. REBIF [Suspect]
     Indication: PRODUCT USED FOR UNKNOWN INDICATION
     Dates: start: 20071013, end: 20111101

REACTIONS (8)
  - WHITE BLOOD CELL COUNT DECREASED [None]
  - TOOTH ABSCESS [None]
  - UPPER RESPIRATORY TRACT INFECTION [None]
  - HERPES ZOSTER [None]
  - INTERVERTEBRAL DISC PROTRUSION [None]
  - SENSORY LOSS [None]
  - URINARY TRACT INFECTION [None]
  - ARTHRITIS [None]
